FAERS Safety Report 6280256-3 (Version None)
Quarter: 2009Q3

REPORT INFORMATION
  Report Type: 
  Country: None (occurrence: None)
  Receive Date: 20090723
  Receipt Date: 20070921
  Transmission Date: 20100115
  Serious: Yes (Other)
  Sender: FDA-Public Use
  Company Number: US-ASTRAZENECA-2006UW22218

PATIENT
  Age: 40 Year
  Sex: Male
  Weight: 94.8 kg

DRUGS (17)
  1. SEROQUEL [Suspect]
     Indication: BIPOLAR DISORDER
     Dosage: 25-100 MG
     Route: 048
     Dates: start: 20020101, end: 20050101
  2. SEROQUEL [Suspect]
     Dosage: 25 MG - 225 MG
     Route: 048
  3. RISPERDAL [Concomitant]
  4. METFORMIN HCL [Concomitant]
  5. ACETYLSALICYLIC ACID [Concomitant]
  6. BENZTROPINE MESYLATE [Concomitant]
  7. TIZANIDINE HCL [Concomitant]
  8. GLUCOTROL [Concomitant]
  9. TRAZODONE [Concomitant]
  10. ABILIFY [Concomitant]
  11. TOPAMAX [Concomitant]
  12. GEODONE [Concomitant]
  13. DEPAKOTE [Concomitant]
  14. VYTORIN [Concomitant]
  15. SIMVASTATIN [Concomitant]
  16. CELEXA [Concomitant]
  17. BUPROPION HCL [Concomitant]

REACTIONS (6)
  - CONVULSION [None]
  - DEMENTIA [None]
  - DIABETES MELLITUS [None]
  - MENTAL DISORDER DUE TO A GENERAL MEDICAL CONDITION [None]
  - MUSCLE SPASTICITY [None]
  - TRAUMATIC BRAIN INJURY [None]
